FAERS Safety Report 5083737-3 (Version None)
Quarter: 2006Q3

REPORT INFORMATION
  Report Type: 
  Country: None (occurrence: None)
  Receive Date: 20060818
  Receipt Date: 20060811
  Transmission Date: 20061208
  Serious: Yes (Hospitalization)
  Sender: FDA-Public Use
  Company Number: NL-ROCHE-459102

PATIENT
  Age: 70 Year
  Sex: Female

DRUGS (4)
  1. CAPECITABINE [Suspect]
     Dosage: DOSE REPORTED AS 2 X 1300
     Route: 048
     Dates: start: 20060417
  2. AVASTIN [Suspect]
     Dosage: DOSE REPORTED AS 470
     Route: 042
     Dates: start: 20060417
  3. OXALIPLATIN [Suspect]
     Dosage: DOSE REPORTED AS 470
     Route: 042
     Dates: start: 20060417
  4. ERBITUX [Suspect]
     Dosage: DOSE REPORTED AS 425
     Route: 042
     Dates: start: 20060416

REACTIONS (1)
  - ACUTE CORONARY SYNDROME [None]
